FAERS Safety Report 4300300-X (Version None)
Quarter: 2004Q1

REPORT INFORMATION
  Report Type: 
  Country: None (occurrence: None)
  Receive Date: 20040218
  Receipt Date: 20040218
  Transmission Date: 20041129
  Serious: Yes (Hospitalization)
  Sender: FDA-Public Use
  Company Number: None

PATIENT
  Age: 23 Year
  Sex: Male
  Weight: 74.8435 kg

DRUGS (2)
  1. TROPICAMIDE OPTH SOLN 0.5% FALCON [Suspect]
     Indication: MYDRIASIS
     Dosage: 1-2 DROPS ONE TIME OPTHALAMIC
     Route: 047
     Dates: start: 20040206, end: 20040206
  2. PROPARACAINE OPTH SOLN 0.5% ALCON [Suspect]
     Indication: ANAESTHESIA
     Dosage: 1-2 DROPS ONE TIME OPTHALAMIC
     Route: 047
     Dates: start: 20040206, end: 20040206

REACTIONS (5)
  - BLOOD PRESSURE DIASTOLIC DECREASED [None]
  - DISORIENTATION [None]
  - FEELING COLD [None]
  - PALLOR [None]
  - SYNCOPE [None]
